FAERS Safety Report 4641901-9 (Version None)
Quarter: 2005Q2

REPORT INFORMATION
  Report Type: 
  Country: None (occurrence: None)
  Receive Date: 20050420
  Receipt Date: 20050401
  Transmission Date: 20051028
  Serious: Yes (Hospitalization, Disabling, Other)
  Sender: FDA-Public Use
  Company Number: US_0504115055

PATIENT
  Age: 42 Year
  Sex: Male

DRUGS (2)
  1. HUMALOG [Suspect]
     Indication: DIABETES MELLITUS
     Dosage: 50 U/2 DAY
     Dates: start: 20010101
  2. LANTUS [Concomitant]

REACTIONS (5)
  - GANGRENE [None]
  - IMPAIRED HEALING [None]
  - LEG AMPUTATION [None]
  - PHARMACEUTICAL PRODUCT COMPLAINT [None]
  - TOE AMPUTATION [None]
